FAERS Safety Report 13156222 (Version 3)
Quarter: 2017Q1

REPORT INFORMATION
  Report Type: Report from Study
  Country: KR (occurrence: KR)
  Receive Date: 20170126
  Receipt Date: 20170221
  Transmission Date: 20170428
  Serious: Yes (Death)
  Sender: FDA-Public Use
  Company Number: KR-NAPPMUNDI-GBR-2017-0043084

PATIENT
  Age: 81 Year
  Sex: Male

DRUGS (2)
  1. IR CODON [Suspect]
     Active Substance: OXYCODONE HYDROCHLORIDE
     Indication: PAIN MANAGEMENT
     Dosage: UNK, PRN [ 5 MG STRENGTH ]
     Route: 065
  2. OXYCONTIN [Suspect]
     Active Substance: OXYCODONE HYDROCHLORIDE
     Indication: PAIN MANAGEMENT
     Dosage: 160 MG, DAILY [80 MG STRENGTH]
     Route: 065

REACTIONS (1)
  - Death [Fatal]
